FAERS Safety Report 10879910 (Version 3)
Quarter: 2015Q2

REPORT INFORMATION
  Report Type: Spontaneous
  Country: US (occurrence: US)
  Receive Date: 20150302
  Receipt Date: 20150506
  Transmission Date: 20150821
  Serious: No
  Sender: FDA-Public Use
  Company Number: US-PFIZER INC-2015069721

PATIENT
  Age: 68 Year
  Sex: Male
  Weight: 105 kg

DRUGS (14)
  1. TRACLEER [Concomitant]
     Active Substance: BOSENTAN\BOSENTAN MONOHYDRATE
     Dosage: 125 MG, 2X/DAY
     Route: 048
  2. REVATIO [Suspect]
     Active Substance: SILDENAFIL CITRATE
     Indication: PULMONARY ARTERIAL HYPERTENSION
  3. PREDNISONE. [Concomitant]
     Active Substance: PREDNISONE
     Dosage: 15 MG, DAILY
  4. AMBIEN [Concomitant]
     Active Substance: ZOLPIDEM TARTRATE
     Dosage: 10 MG, 1X/DAY
     Route: 048
  5. CALCIUM CARBONATE. [Concomitant]
     Active Substance: CALCIUM CARBONATE
     Dosage: 600 MG, 2X/DAY
     Route: 048
  6. CELLCEPT [Concomitant]
     Active Substance: MYCOPHENOLATE MOFETIL\MYCOPHENOLATE MOFETIL HYDROCHLORIDE
     Dosage: 500 MG, 3X/DAY
     Route: 048
  7. LEVOTHYROXIN [Concomitant]
     Active Substance: LEVOTHYROXINE
     Dosage: 75 ?G, DAILY
     Route: 048
  8. PREDNISONE. [Concomitant]
     Active Substance: PREDNISONE
     Dosage: 20 MG, DAILY
  9. INFLUENZA VIRUS VACCINE [Concomitant]
     Active Substance: INFLUENZA VIRUS VACCINE
     Dosage: 0.5 ML, SINGLE
     Route: 030
  10. REVATIO [Suspect]
     Active Substance: SILDENAFIL CITRATE
     Indication: INTERSTITIAL LUNG DISEASE
     Dosage: 40MG/20MG/20MG
     Route: 048
  11. REVATIO [Suspect]
     Active Substance: SILDENAFIL CITRATE
     Indication: GASTROOESOPHAGEAL REFLUX DISEASE
  12. OMEPRAZOLE. [Concomitant]
     Active Substance: OMEPRAZOLE
     Dosage: 20 MG, 2X/DAY
     Route: 048
  13. OXYGEN. [Concomitant]
     Active Substance: OXYGEN
     Dosage: 3 L, 1X/DAY
  14. ASPIRIN. [Concomitant]
     Active Substance: ASPIRIN
     Dosage: 81 MG, 1X/DAY
     Route: 048

REACTIONS (1)
  - Upper respiratory tract infection [Unknown]

NARRATIVE: CASE EVENT DATE: 201411
